FAERS Safety Report 9232651 (Version 1)
Quarter: 2013Q1

REPORT INFORMATION
  Report Type: Spontaneous
  Country: US (occurrence: None)
  Receive Date: 20121013
  Receipt Date: 20121013
  Transmission Date: 20140127
  Serious: No
  Sender: FDA-Public Use
  Company Number: PHEH2012US011729

PATIENT
  Age: 56 Year
  Sex: Female
  Weight: 111.6 kg

DRUGS (1)
  1. GILENYA [Suspect]
     Indication: MULTIPLE SCLEROSIS
     Route: 048
     Dates: start: 20120319, end: 20120428

REACTIONS (5)
  - Insomnia [None]
  - Malaise [None]
  - Dizziness [None]
  - Blood pressure increased [None]
  - Headache [None]
